FAERS Safety Report 15361210 (Version 3)
Quarter: 2018Q4

REPORT INFORMATION
  Report Type: Spontaneous
  Country: ES (occurrence: ES)
  Receive Date: 20180907
  Receipt Date: 20181029
  Transmission Date: 20190204
  Serious: Yes (Disabling, Other)
  Sender: FDA-Public Use
  Company Number: ES-JNJFOC-20180901799

PATIENT
  Age: 59 Year
  Sex: Female
  Weight: 58 kg

DRUGS (1)
  1. STELARA [Suspect]
     Active Substance: USTEKINUMAB
     Indication: PSORIASIS
     Route: 058
     Dates: start: 20140420, end: 20170313

REACTIONS (2)
  - Adenocarcinoma of colon [Not Recovered/Not Resolved]
  - Hydronephrosis [Unknown]

NARRATIVE: CASE EVENT DATE: 20170518
